FAERS Safety Report 7266177-8 (Version None)
Quarter: 2011Q1

REPORT INFORMATION
  Report Type: 
  Country: None (occurrence: None)
  Receive Date: 20110131
  Receipt Date: 20100817
  Transmission Date: 20110831
  Serious: No
  Sender: FDA-Public Use
  Company Number: US-ABBOTT-10P-163-0664744-00

PATIENT
  Sex: Male
  Weight: 74.91 kg

DRUGS (3)
  1. LUPRON DEPOT [Suspect]
     Indication: PROSTATE CANCER
     Dates: start: 20000101, end: 20090101
  2. CLARITIN [Concomitant]
     Indication: HYPERSENSITIVITY
     Dates: start: 20100801
  3. UNKNOWN HIGH BLOOD PRESSURE [Concomitant]
     Indication: HYPERTENSION

REACTIONS (1)
  - HOT FLUSH [None]
